FAERS Safety Report 10729996 (Version 3)
Quarter: 2015Q2

REPORT INFORMATION
  Report Type: Spontaneous
  Country: TR (occurrence: TR)
  Receive Date: 20150122
  Receipt Date: 20150416
  Transmission Date: 20150821
  Serious: Yes (Other)
  Sender: FDA-Public Use
  Company Number: TR-PFIZER INC-2015024964

PATIENT
  Age: 65 Year
  Sex: Male

DRUGS (3)
  1. NEURONTIN [Suspect]
     Active Substance: GABAPENTIN
     Indication: NERVE INJURY
     Dosage: 400 MG, 2X/DAY
     Route: 048
     Dates: start: 2014, end: 2015
  2. NEURONTIN [Suspect]
     Active Substance: GABAPENTIN
     Indication: PARALYSIS
     Dosage: 800 MG, 2X/DAY
     Route: 048
     Dates: start: 201504
  3. EXFORGE [Concomitant]
     Active Substance: AMLODIPINE BESYLATE\VALSARTAN
     Indication: HYPERTENSION
     Dosage: 5 MG, UNK

REACTIONS (6)
  - Pre-existing condition improved [Unknown]
  - Pneumonitis [Recovered/Resolved]
  - Therapeutic response unexpected [Unknown]
  - Hair growth abnormal [Not Recovered/Not Resolved]
  - Pruritus [Recovered/Resolved]
  - Diplopia [Recovered/Resolved]

NARRATIVE: CASE EVENT DATE: 2014
